FAERS Safety Report 11391185 (Version 1)
Quarter: 2015Q3

REPORT INFORMATION
  Report Type: Spontaneous
  Country: US (occurrence: US)
  Receive Date: 20150818
  Receipt Date: 20150818
  Transmission Date: 20151125
  Serious: Yes (Other)
  Sender: FDA-Public Use
  Company Number: US-ASTRAZENECA-2015SE78895

PATIENT
  Sex: Female

DRUGS (19)
  1. ATIVAN [Concomitant]
     Active Substance: LORAZEPAM
  2. TRAMADOL HCL [Concomitant]
     Active Substance: TRAMADOL HYDROCHLORIDE
  3. DECADRON [Concomitant]
     Active Substance: DEXAMETHASONE
  4. RED YEAST RICE [Concomitant]
     Active Substance: DIETARY SUPPLEMENT
  5. FIBER [Concomitant]
     Active Substance: PSYLLIUM HUSK
  6. FULVESTRANT [Suspect]
     Active Substance: FULVESTRANT
     Route: 030
  7. MELOXICAM. [Concomitant]
     Active Substance: MELOXICAM
  8. UBLDECARENONE [Concomitant]
  9. OXYCONTIN [Concomitant]
     Active Substance: OXYCODONE HYDROCHLORIDE
  10. IBRANCE [Suspect]
     Active Substance: PALBOCICLIB
     Route: 048
  11. MULTIVITAMINS [Concomitant]
     Active Substance: VITAMINS
  12. MIRALAX [Concomitant]
     Active Substance: POLYETHYLENE GLYCOL 3350
  13. PROVENTIL HFA [Concomitant]
     Active Substance: ALBUTEROL SULFATE
  14. CALCIUM/VITAMIN D [Concomitant]
     Active Substance: CALCIUM\VITAMIN D
  15. ZOFRAN [Concomitant]
     Active Substance: ONDANSETRON HYDROCHLORIDE
  16. OXYCODONE/ACETAMINOPHEN [Concomitant]
     Active Substance: ACETAMINOPHEN\OXYCODONE HYDROCHLORIDE
  17. XGEVA [Concomitant]
     Active Substance: DENOSUMAB
  18. ANASTROZOLE. [Suspect]
     Active Substance: ANASTROZOLE
     Route: 048
  19. ASCORBIC ACID. [Concomitant]
     Active Substance: ASCORBIC ACID

REACTIONS (6)
  - Anaemia [Unknown]
  - Disease progression [Unknown]
  - Metastases to bone [Unknown]
  - Fall [Unknown]
  - Thrombocytopenia [Unknown]
  - Back pain [Unknown]
